FAERS Safety Report 14460194 (Version 1)
Quarter: 2018Q1

REPORT INFORMATION
  Report Type: Spontaneous
  Country: US (occurrence: US)
  Receive Date: 20180130
  Receipt Date: 20180130
  Transmission Date: 20180509
  Serious: No
  Sender: FDA-Public Use
  Company Number: None

PATIENT
  Age: 35 Year
  Sex: Male
  Weight: 94.05 kg

DRUGS (6)
  1. BUPRENORPHINE SUBLINGUAL TABLETS [Suspect]
     Active Substance: BUPRENORPHINE
     Indication: PAIN
     Dosage: ?          QUANTITY:1 TABLET(S);?
     Route: 060
  2. VITAMIN C [Concomitant]
     Active Substance: ASCORBIC ACID
  3. NP THYROID [Concomitant]
     Active Substance: LEVOTHYROXINE\LIOTHYRONINE
  4. METAMUCIL [Concomitant]
     Active Substance: PLANTAGO SEED
  5. PROBIOTICS [Concomitant]
     Active Substance: PROBIOTICS NOS
  6. PAXIL [Concomitant]
     Active Substance: PAROXETINE HYDROCHLORIDE

REACTIONS (4)
  - Allergic reaction to excipient [None]
  - Tongue discomfort [None]
  - Drug effect decreased [None]
  - Product substitution issue [None]

NARRATIVE: CASE EVENT DATE: 20180101
